FAERS Safety Report 6628772-6 (Version None)
Quarter: 2010Q1

REPORT INFORMATION
  Report Type: 
  Country: None (occurrence: None)
  Receive Date: 20100311
  Receipt Date: 20100226
  Transmission Date: 20100710
  Serious: Yes (Other)
  Sender: FDA-Public Use
  Company Number: US-PFIZER INC-2010025748

PATIENT
  Sex: Female

DRUGS (1)
  1. CHANTIX [Suspect]

REACTIONS (9)
  - ANXIETY [None]
  - CONFUSIONAL STATE [None]
  - FEAR [None]
  - FEELING ABNORMAL [None]
  - HYPOAESTHESIA [None]
  - HYPOAESTHESIA ORAL [None]
  - NAUSEA [None]
  - NERVOUSNESS [None]
  - PARAESTHESIA [None]
